FAERS Safety Report 5873690-4 (Version None)
Quarter: 2008Q3

REPORT INFORMATION
  Report Type: 
  Country: None (occurrence: None)
  Receive Date: 20080908
  Receipt Date: 20080904
  Transmission Date: 20090109
  Serious: Yes (Other)
  Sender: FDA-Public Use
  Company Number: B0534893A

PATIENT
  Age: 22 Year
  Sex: Female

DRUGS (7)
  1. PAXIL [Suspect]
     Indication: DRUG USE FOR UNKNOWN INDICATION
     Route: 048
  2. PAXIL [Suspect]
     Indication: PANIC DISORDER
     Dosage: 10MG PER DAY
     Route: 048
     Dates: start: 20080820
  3. MYSLEE [Concomitant]
     Indication: INSOMNIA
     Dosage: 10MG PER DAY
     Route: 048
     Dates: start: 20080831
  4. DIAZEPAM [Concomitant]
     Indication: ANXIETY
     Route: 048
     Dates: start: 20080828, end: 20080829
  5. RITODRINE HYDROCHLORIDE [Concomitant]
     Route: 042
     Dates: start: 20080828
  6. BETAMETHASONE [Concomitant]
     Indication: ANALGESIA
     Dates: start: 20080829, end: 20080830
  7. ZYPREXA [Concomitant]
     Indication: RESTLESSNESS
     Route: 048
     Dates: start: 20080830, end: 20080831

REACTIONS (4)
  - DRUG EXPOSURE DURING PREGNANCY [None]
  - OVERDOSE [None]
  - PREMATURE BABY [None]
  - THREATENED LABOUR [None]
